FAERS Safety Report 9512528 (Version 1)
Quarter: 2013Q1

REPORT INFORMATION
  Report Type: Spontaneous
  Country: US (occurrence: None)
  Receive Date: 20130305
  Receipt Date: 20130305
  Transmission Date: 20140127
  Serious: Yes (Hospitalization)
  Sender: FDA-Public Use
  Company Number: 163-21880-12051758

PATIENT
  Age: 64 Year
  Sex: Female

DRUGS (16)
  1. REVLIMID [Suspect]
     Indication: PLASMA CELL MYELOMA
     Route: 048
     Dates: start: 20120502
  2. VELCADE (UNKNOWN) [Concomitant]
  3. DEXAMETHASONE (DEXAMETHASONE) (UNKNOWN) [Concomitant]
  4. INSULIN (INSULIN) (UNKNOWN) [Concomitant]
  5. GLIPIZIDE (GLIPIZIDE) (UNKNOWN) [Concomitant]
  6. NORTRIPTYLINE (NORTRIPTYLINE) (UNKNOWN) [Concomitant]
  7. METFORMIN METFORMIN (UNKNOWN) [Concomitant]
  8. ASA (ACETYLSALICYLIC ACID) (UNKNOWN) [Concomitant]
  9. LISINOPRIL (LISINOPRIL) (UNKNOWN) [Concomitant]
  10. HYDROCODONE/APAP (VICODIN) (UNKNOWN) [Concomitant]
  11. ALLOPURINOL (ALLOPURINOL) (UNKNOWN) [Concomitant]
  12. MVI (MVI) (UNKNOWN) [Concomitant]
  13. OMEPRAZOLE (OMEPRAZOLE) (UNKNOWN) [Concomitant]
  14. PRAVASTATIN (PRAVASTATIN) (UNKNOWN) [Concomitant]
  15. DIPHENHYDRAMINE (DIPHENHYDRAMINE) (UNKNOWN) [Concomitant]
  16. HYDROCORTISONE (HYDROCORTISONE) (UNKNOWN) [Concomitant]

REACTIONS (4)
  - Pyrexia [None]
  - Fatigue [None]
  - Inflammation [None]
  - Medication error [None]
